FAERS Safety Report 23879013 (Version 2)
Quarter: 2024Q3

REPORT INFORMATION
  Report Type: Report from Study
  Country: FR (occurrence: FR)
  Receive Date: 20240521
  Receipt Date: 20240701
  Transmission Date: 20241017
  Serious: Yes (Other)
  Sender: DAIICHI
  Company Number: FR-DSJP-DSE-2024-118283

PATIENT
  Age: 63 Year
  Sex: Female
  Weight: 56 kg

DRUGS (5)
  1. ENHERTU [Suspect]
     Active Substance: FAM-TRASTUZUMAB DERUXTECAN-NXKI
     Indication: HER2 low breast cancer
     Dosage: UNK
     Route: 065
     Dates: start: 20231213
  2. ENHERTU [Suspect]
     Active Substance: FAM-TRASTUZUMAB DERUXTECAN-NXKI
     Indication: Breast cancer metastatic
     Dosage: 4.23 MG/KG, CYCLIC
     Route: 065
     Dates: start: 20240214
  3. ENHERTU [Suspect]
     Active Substance: FAM-TRASTUZUMAB DERUXTECAN-NXKI
     Dosage: 4.23 MG/KG, CYCLIC
     Route: 065
     Dates: start: 20240327
  4. ENHERTU [Suspect]
     Active Substance: FAM-TRASTUZUMAB DERUXTECAN-NXKI
     Dosage: UNK
     Route: 065
     Dates: start: 20240529
  5. UNSPECIFIED INGREDIENT [Concomitant]
     Active Substance: UNSPECIFIED INGREDIENT
     Indication: Antiemetic supportive care
     Dosage: UNK
     Route: 065

REACTIONS (22)
  - Urinary bladder haemorrhage [Unknown]
  - Cholestasis [Unknown]
  - Cell death [Unknown]
  - Haematuria [Unknown]
  - Venous thrombosis limb [Unknown]
  - Anaemia [Unknown]
  - Pain [Recovering/Resolving]
  - Vitamin D deficiency [Unknown]
  - Oedema peripheral [Recovering/Resolving]
  - Weight decreased [Unknown]
  - Musculoskeletal chest pain [Unknown]
  - Back pain [Unknown]
  - Abdominal pain lower [Unknown]
  - Liver function test abnormal [Unknown]
  - Oedema peripheral [Unknown]
  - Decreased appetite [Unknown]
  - Asthenia [Unknown]
  - Nausea [Not Recovered/Not Resolved]
  - Fatigue [Unknown]
  - Dyspepsia [Unknown]
  - Incorrect dose administered [Not Recovered/Not Resolved]
  - Intentional product use issue [Not Recovered/Not Resolved]

NARRATIVE: CASE EVENT DATE: 20240214
